FAERS Safety Report 6151414-3 (Version None)
Quarter: 2009Q2

REPORT INFORMATION
  Report Type: 
  Country: None (occurrence: None)
  Receive Date: 20090410
  Receipt Date: 20090403
  Transmission Date: 20091009
  Serious: Yes (Hospitalization)
  Sender: FDA-Public Use
  Company Number: US-BIOGENIDEC-2009BI008180

PATIENT
  Age: 40 Year
  Sex: Female
  Weight: 104 kg

DRUGS (2)
  1. TYSABRI [Suspect]
     Indication: MULTIPLE SCLEROSIS
     Route: 042
     Dates: start: 20090101
  2. BACLOFEN [Concomitant]
     Indication: ASTHENIA

REACTIONS (4)
  - ABSCESS [None]
  - ASTHENIA [None]
  - PYREXIA [None]
  - SKIN INFECTION [None]
